FAERS Safety Report 14844023 (Version 2)
Quarter: 2018Q2

REPORT INFORMATION
  Report Type: Spontaneous
  Country: JP (occurrence: JP)
  Receive Date: 20180503
  Receipt Date: 20180503
  Transmission Date: 20180711
  Serious: Yes (Other)
  Sender: FDA-Public Use
  Company Number: PHHY2018JP071366

PATIENT
  Age: 14 Year
  Sex: Male

DRUGS (10)
  1. PREDNISOLONE. [Suspect]
     Active Substance: PREDNISOLONE
     Dosage: 40 MG/M2, INDUCTION PHASE (DAY 15-28)
     Route: 065
  2. PREDNISOLONE. [Suspect]
     Active Substance: PREDNISOLONE
     Dosage: 40 MG/M2, RE-INDUCTION (DAY 1-14)
     Route: 065
  3. L-ASPARAGINASE [Suspect]
     Active Substance: ASPARAGINASE
     Dosage: 6000 IU/M2, RE-INDUCTION (DAY 1, 3, 5, 8, 10, 12)
     Route: 065
  4. PREDNISOLONE. [Suspect]
     Active Substance: PREDNISOLONE
     Indication: ACUTE LYMPHOCYTIC LEUKAEMIA
     Dosage: 15-60 MG/M2, INDUCTION PHASE (DAY 1-7)
     Route: 065
  5. DEXAMETHASONE. [Suspect]
     Active Substance: DEXAMETHASONE
     Dosage: 10 MG/M2, CONSOLIDATION (DAY 1-5)
     Route: 065
  6. L-ASPARAGINASE [Suspect]
     Active Substance: ASPARAGINASE
     Indication: ACUTE LYMPHOCYTIC LEUKAEMIA
     Dosage: 6000 IU/M2, INDUCTION (DAY 15, 17, 19, 22, 24, 26)
     Route: 065
  7. DEXAMETHASONE. [Suspect]
     Active Substance: DEXAMETHASONE
     Dosage: 10 MG/M2, RECONSOLIDATION (DAY 1-5)
     Route: 065
  8. PREDNISOLONE. [Suspect]
     Active Substance: PREDNISOLONE
     Dosage: 40 MG/M2, MAINTENANCE (DAY 1-7)
     Route: 065
  9. L-ASPARAGINASE [Suspect]
     Active Substance: ASPARAGINASE
     Dosage: 10000 IU/M2, MAINTENANCE (DAY 1)
     Route: 065
  10. DEXAMETHASONE. [Suspect]
     Active Substance: DEXAMETHASONE
     Indication: ACUTE LYMPHOCYTIC LEUKAEMIA
     Dosage: 10 MG/M2, INDUCTION (DAY 8-14)
     Route: 065

REACTIONS (1)
  - Osteonecrosis [Unknown]
